FAERS Safety Report 11080852 (Version 1)
Quarter: 2015Q2

REPORT INFORMATION
  Report Type: Report from Study
  Country: CA (occurrence: CA)
  Receive Date: 20150501
  Receipt Date: 20150501
  Transmission Date: 20150821
  Serious: Yes (Other)
  Sender: FDA-Public Use
  Company Number: CA-ROCHE-1571047

PATIENT

DRUGS (2)
  1. ALTEPLASE [Suspect]
     Active Substance: ALTEPLASE
     Indication: SUBARACHNOID HAEMORRHAGE
     Route: 037
  2. NIMODIPINE. [Concomitant]
     Active Substance: NIMODIPINE
     Route: 065

REACTIONS (2)
  - Off label use [Unknown]
  - Device related infection [Unknown]
